FAERS Safety Report 24790616 (Version 1)
Quarter: 2024Q4

REPORT INFORMATION
  Report Type: Spontaneous
  Country: CN (occurrence: CN)
  Receive Date: 20241230
  Receipt Date: 20241230
  Transmission Date: 20250115
  Serious: Yes (Other)
  Sender: NOVARTIS
  Company Number: CN-002147023-NVSC2024CN245195

PATIENT
  Age: 78 Year
  Sex: Male
  Weight: 67.6 kg

DRUGS (1)
  1. SACUBITRIL\VALSARTAN [Suspect]
     Active Substance: SACUBITRIL\VALSARTAN
     Indication: Cardiac failure chronic
     Dosage: 0.025 G, QD
     Route: 048
     Dates: start: 20241219, end: 20241220

REACTIONS (4)
  - Hypotension [Recovering/Resolving]
  - Dizziness [Recovering/Resolving]
  - Asthenia [Recovering/Resolving]
  - Amaurosis [Unknown]

NARRATIVE: CASE EVENT DATE: 20241220
